FAERS Safety Report 18326108 (Version 1)
Quarter: 2020Q3

REPORT INFORMATION
  Report Type: Report from Study
  Country: US (occurrence: US)
  Receive Date: 20200929
  Receipt Date: 20200929
  Transmission Date: 20201103
  Serious: Yes (Hospitalization)
  Sender: FDA-Public Use
  Company Number: US-JNJFOC-A-US2019-189818

PATIENT
  Age: 67 Year
  Sex: Female

DRUGS (18)
  1. SPIRONOLACTONE. [Concomitant]
     Active Substance: SPIRONOLACTONE
     Dates: start: 20200719
  2. ACETAZOLAMIDE. [Concomitant]
     Active Substance: ACETAZOLAMIDE
  3. MS CONTIN [Concomitant]
     Active Substance: MORPHINE SULFATE
  4. OMEPRAZOL [Concomitant]
     Active Substance: OMEPRAZOLE
     Dates: start: 20200924
  5. SIMVASTATIN. [Concomitant]
     Active Substance: SIMVASTATIN
     Dates: start: 20200912
  6. SENNA GEN [Concomitant]
     Active Substance: SENNOSIDES
  7. OPSUMIT [Suspect]
     Active Substance: MACITENTAN
     Indication: PULMONARY ARTERIAL HYPERTENSION
     Dosage: 10 MG, QD
     Route: 048
     Dates: start: 201412, end: 20200910
  8. FUROSEMIDE. [Concomitant]
     Active Substance: FUROSEMIDE
     Dates: start: 20200806
  9. BOSENTAN. [Concomitant]
     Active Substance: BOSENTAN
  10. CALCIUM 600 WITH VITAMIN D3 [Concomitant]
     Active Substance: CALCIUM CARBONATE\VITAMIN D
  11. SILDENAFIL. [Concomitant]
     Active Substance: SILDENAFIL
     Dosage: 1 TABLET EVERY TUES, THURSDAY AND SATURDAY
     Dates: start: 20200720
  12. GABAPENTIN. [Concomitant]
     Active Substance: GABAPENTIN
     Dates: start: 20200806
  13. DIGOXIN. [Concomitant]
     Active Substance: DIGOXIN
     Dates: start: 20200720
  14. BUPROPION. [Concomitant]
     Active Substance: BUPROPION
     Dates: start: 20200924
  15. SERTRALINE [Concomitant]
     Active Substance: SERTRALINE HYDROCHLORIDE
     Dates: start: 20200924
  16. FISH OIL [Concomitant]
     Active Substance: FISH OIL
  17. POTASSIUM CHLORIDE. [Concomitant]
     Active Substance: POTASSIUM CHLORIDE
     Dates: start: 20200806
  18. FERROUS SULFATE. [Concomitant]
     Active Substance: FERROUS SULFATE

REACTIONS (4)
  - Acute respiratory failure [Recovering/Resolving]
  - Productive cough [Recovering/Resolving]
  - Chronic obstructive pulmonary disease [Recovering/Resolving]
  - Dyspnoea [Recovering/Resolving]
